FAERS Safety Report 6542830-6 (Version None)
Quarter: 2010Q1

REPORT INFORMATION
  Report Type: 
  Country: None (occurrence: None)
  Receive Date: 20100114
  Receipt Date: 20091229
  Transmission Date: 20100710
  Serious: Yes (Hospitalization, Other)
  Sender: FDA-Public Use
  Company Number: 2009BE0049

PATIENT
  Sex: Male

DRUGS (1)
  1. ORFADIN [Suspect]
     Indication: TYROSINAEMIA
     Dosage: ORAL
     Route: 048
     Dates: start: 20000101

REACTIONS (2)
  - ALPHA 1 FOETOPROTEIN INCREASED [None]
  - LIVER TRANSPLANT [None]
